FAERS Safety Report 17717408 (Version 1)
Quarter: 2020Q2

REPORT INFORMATION
  Report Type: Spontaneous
  Country: US (occurrence: US)
  Receive Date: 20200427
  Receipt Date: 20200427
  Transmission Date: 20200714
  Serious: Yes (Hospitalization)
  Sender: FDA-Public Use
  Company Number: None

PATIENT
  Age: 65 Year
  Sex: Female

DRUGS (5)
  1. AUSTEDO [Suspect]
     Active Substance: DEUTETRABENAZINE
     Indication: HUNTINGTON^S DISEASE
     Route: 048
     Dates: start: 20190917
  2. CLINDAMYCIN. [Concomitant]
     Active Substance: CLINDAMYCIN
  3. DISYCLOMINE [Concomitant]
  4. TRIAMCINOLON PST DEN [Concomitant]
  5. IBUPROFEN. [Concomitant]
     Active Substance: IBUPROFEN

REACTIONS (1)
  - Gastric disorder [None]

NARRATIVE: CASE EVENT DATE: 202004
